FAERS Safety Report 19717635 (Version 1)
Quarter: 2021Q3

REPORT INFORMATION
  Report Type: Spontaneous
  Country: US (occurrence: US)
  Receive Date: 20210819
  Receipt Date: 20210819
  Transmission Date: 20211014
  Serious: Yes (Hospitalization, Other)
  Sender: FDA-Public Use
  Company Number: US-ASTRAZENECA-2021A683338

PATIENT
  Age: 426 Month
  Sex: Male
  Weight: 86.6 kg

DRUGS (1)
  1. SYMBICORT [Suspect]
     Active Substance: BUDESONIDE\FORMOTEROL FUMARATE DIHYDRATE
     Indication: COVID-19
     Dosage: SYMBICORT 160MCG/4.5MCG AS 2 PUFFS 2 TIMES PER DAY
     Route: 055
     Dates: start: 202004

REACTIONS (6)
  - Anaphylactic reaction [Recovering/Resolving]
  - Angioedema [Not Recovered/Not Resolved]
  - Ejection fraction decreased [Not Recovered/Not Resolved]
  - Off label use [Unknown]
  - Device use issue [Unknown]
  - Dyspnoea [Not Recovered/Not Resolved]

NARRATIVE: CASE EVENT DATE: 202004
